FAERS Safety Report 21341908 (Version 2)
Quarter: 2022Q3

REPORT INFORMATION
  Report Type: Report from Study
  Country: US (occurrence: US)
  Receive Date: 20220916
  Receipt Date: 20220930
  Transmission Date: 20221026
  Serious: No
  Sender: FDA-Public Use
  Company Number: US-SA-SAC20220912001111

PATIENT
  Age: 28 Year
  Sex: Female

DRUGS (1)
  1. TERIFLUNOMIDE [Suspect]
     Active Substance: TERIFLUNOMIDE
     Indication: Multiple sclerosis
     Dosage: 7 MG, QD
     Route: 048
     Dates: start: 20200909, end: 20220908

REACTIONS (16)
  - Fatigue [Unknown]
  - Pain [Unknown]
  - Hypoaesthesia [Unknown]
  - Insomnia [Unknown]
  - Acne [Unknown]
  - Chest pain [Unknown]
  - Anxiety [Unknown]
  - Asthenia [Unknown]
  - Nervous system disorder [Unknown]
  - Menstrual disorder [Unknown]
  - Temperature intolerance [Unknown]
  - Headache [Unknown]
  - Alopecia [Unknown]
  - Weight decreased [Unknown]
  - Arthralgia [Unknown]
  - Drug ineffective [Unknown]
